FAERS Safety Report 7676910-9 (Version None)
Quarter: 2011Q3

REPORT INFORMATION
  Report Type: 
  Country: None (occurrence: None)
  Receive Date: 20110811
  Receipt Date: 20110801
  Transmission Date: 20111222
  Serious: Yes (Hospitalization, Other)
  Sender: FDA-Public Use
  Company Number: PHHY2011AU06604

PATIENT
  Sex: Female

DRUGS (3)
  1. GLEEVEC [Suspect]
     Indication: CHRONIC MYELOID LEUKAEMIA
     Dosage: 600 MG, UNK
     Route: 048
     Dates: start: 20040719
  2. STEROIDS NOS [Concomitant]
  3. GLEEVEC [Suspect]
     Dosage: UNK

REACTIONS (4)
  - BONE FORMATION INCREASED [None]
  - HIP FRACTURE [None]
  - TENDON DISORDER [None]
  - MYOSITIS [None]
